FAERS Safety Report 7451956-4 (Version None)
Quarter: 2011Q2

REPORT INFORMATION
  Report Type: 
  Country: None (occurrence: None)
  Receive Date: 20110502
  Receipt Date: 20110427
  Transmission Date: 20111010
  Serious: Yes (Death, Other)
  Sender: FDA-Public Use
  Company Number: US-BRISTOL-MYERS SQUIBB COMPANY-15703226

PATIENT
  Age: 47 Year
  Sex: Male

DRUGS (2)
  1. PRISTIQ [Concomitant]
  2. ABILIFY [Suspect]
     Dosage: 2 +3RD DOSE ON: AUG2009 NO OF DOSES:2-3

REACTIONS (3)
  - CONVULSION [None]
  - DEATH [None]
  - CEREBROVASCULAR ACCIDENT [None]
